FAERS Safety Report 7820499-8 (Version None)
Quarter: 2011Q4

REPORT INFORMATION
  Report Type: 
  Country: None (occurrence: None)
  Receive Date: 20111012
  Receipt Date: 20110926
  Transmission Date: 20120403
  Serious: Yes (Other)
  Sender: FDA-Public Use
  Company Number: 2011SP047240

PATIENT
  Age: 85 Year
  Sex: Female

DRUGS (1)
  1. AFRIN [Suspect]
     Indication: PRODUCT USED FOR UNKNOWN INDICATION
     Dosage: 8 DFL QD; NAS
     Route: 045
     Dates: start: 19600101

REACTIONS (1)
  - NASAL MUCOSAL DISORDER [None]
